FAERS Safety Report 24329123 (Version 2)
Quarter: 2024Q3

REPORT INFORMATION
  Report Type: Report from Study
  Country: MX (occurrence: MX)
  Receive Date: 20240917
  Receipt Date: 20240924
  Transmission Date: 20241017
  Serious: Yes (Other)
  Sender: REGENERON
  Company Number: MX-BAYER-2024A130354

PATIENT
  Age: 73 Year
  Sex: Female

DRUGS (1)
  1. EYLEA [Suspect]
     Active Substance: AFLIBERCEPT
     Indication: Diabetic retinal oedema
     Dosage: 50 MICROLITRES EVERY 28 DAYS, STRENGTH- 40MG/ML
     Dates: start: 20240623, end: 20240802

REACTIONS (2)
  - Cataract operation [Unknown]
  - Therapy cessation [Not Recovered/Not Resolved]

NARRATIVE: CASE EVENT DATE: 20240908
